FAERS Safety Report 11631223 (Version 2)
Quarter: 2015Q4

REPORT INFORMATION
  Report Type: Spontaneous
  Country: KZ (occurrence: KZ)
  Receive Date: 20151014
  Receipt Date: 20151124
  Transmission Date: 20160304
  Serious: Yes (Other)
  Sender: FDA-Public Use
  Company Number: PHHY2015KZ123454

PATIENT
  Age: 35 Year
  Sex: Female

DRUGS (1)
  1. ONBREZ BREEZHALER [Suspect]
     Active Substance: INDACATEROL
     Indication: DYSPNOEA
     Dosage: 150 MG, UNK
     Route: 055

REACTIONS (2)
  - Off label use [Recovered/Resolved]
  - Wrong technique in product usage process [Unknown]
